FAERS Safety Report 17055798 (Version 2)
Quarter: 2019Q4

REPORT INFORMATION
  Report Type: Report from Study
  Country: US (occurrence: US)
  Receive Date: 20191120
  Receipt Date: 20191202
  Transmission Date: 20200122
  Serious: No
  Sender: FDA-Public Use
  Company Number: NVSC2019US039629

PATIENT
  Sex: Female
  Weight: 50.57 kg

DRUGS (2)
  1. OPSUMIT [Concomitant]
     Active Substance: MACITENTAN
     Indication: PRODUCT USED FOR UNKNOWN INDICATION
     Route: 065
  2. TREPROSTINIL. [Suspect]
     Active Substance: TREPROSTINIL
     Indication: PULMONARY ARTERIAL HYPERTENSION
     Dosage: 5 NG/KG/MIN, CONT
     Route: 042
     Dates: start: 20191106

REACTIONS (3)
  - Fall [Unknown]
  - Amnesia [Unknown]
  - Skin irritation [Unknown]
